FAERS Safety Report 7271448-5 (Version None)
Quarter: 2011Q1

REPORT INFORMATION
  Report Type: 
  Country: None (occurrence: None)
  Receive Date: 20110203
  Receipt Date: 20110125
  Transmission Date: 20110831
  Serious: Yes (Hospitalization)
  Sender: FDA-Public Use
  Company Number: 199763

PATIENT
  Age: 36 Year
  Sex: Female
  Weight: 99 kg

DRUGS (2)
  1. AVONEX [Suspect]
     Route: 030
     Dates: start: 20030801, end: 20090121
  2. AVONEX [Suspect]
     Indication: MULTIPLE SCLEROSIS
     Route: 030
     Dates: start: 20020401, end: 20030801

REACTIONS (3)
  - NEPHROLITHIASIS [None]
  - FEMALE STERILISATION [None]
  - MULTIPLE SCLEROSIS RELAPSE [None]
